FAERS Safety Report 6412914-1 (Version None)
Quarter: 2009Q4

REPORT INFORMATION
  Report Type: 
  Country: None (occurrence: None)
  Receive Date: 20091023
  Receipt Date: 20091015
  Transmission Date: 20100525
  Serious: Yes (Other)
  Sender: FDA-Public Use
  Company Number: US-TYCO HEALTHCARE/MALLINCKRODT-T200901902

PATIENT
  Sex: Male

DRUGS (1)
  1. OXYCODONE [Suspect]
     Indication: CANCER PAIN

REACTIONS (7)
  - BURNING SENSATION [None]
  - DRUG EFFECT DECREASED [None]
  - INSOMNIA [None]
  - MUSCLE SPASMS [None]
  - PAIN IN EXTREMITY [None]
  - PERIPHERAL ARTERIAL OCCLUSIVE DISEASE [None]
  - YAWNING [None]
